FAERS Safety Report 14815251 (Version 1)
Quarter: 2018Q2

REPORT INFORMATION
  Report Type: Spontaneous
  Country: US (occurrence: US)
  Receive Date: 20180426
  Receipt Date: 20180426
  Transmission Date: 20180711
  Serious: Yes (Other)
  Sender: FDA-Public Use
  Company Number: US-TEVA-2018-US-884954

PATIENT
  Age: 62 Year
  Sex: Female

DRUGS (5)
  1. OLANZAPINE. [Suspect]
     Active Substance: OLANZAPINE
     Indication: SCHIZOAFFECTIVE DISORDER BIPOLAR TYPE
     Dosage: 30MG EVERY NIGHT
     Route: 065
  2. LORAZEPAM. [Concomitant]
     Active Substance: LORAZEPAM
     Indication: SCHIZOAFFECTIVE DISORDER BIPOLAR TYPE
     Dosage: 1 MG THREE TIMES A DAY, INCREASED TO 2MG THREE TIMES A DAY ON DAY 3 AND TAPERED OFF BY DAY 6
     Route: 065
  3. CLOZAPINE. [Suspect]
     Active Substance: CLOZAPINE
     Indication: SCHIZOAFFECTIVE DISORDER BIPOLAR TYPE
     Dosage: 25MG NIGHTLY, TITRATED TO 150MG IN NEXT 3 WEEKS
     Route: 065
  4. CLOZAPINE. [Suspect]
     Active Substance: CLOZAPINE
     Indication: SCHIZOAFFECTIVE DISORDER BIPOLAR TYPE
     Dosage: RESTARTED AND INCREASED TO 50MG NIGHTLY OVER 7 DAYS
     Route: 065
  5. SERTRALINE [Suspect]
     Active Substance: SERTRALINE HYDROCHLORIDE
     Indication: SCHIZOAFFECTIVE DISORDER BIPOLAR TYPE
     Dosage: 200 MILLIGRAM DAILY;
     Route: 065

REACTIONS (1)
  - Pneumonia aspiration [Recovered/Resolved]
